FAERS Safety Report 8626039-8 (Version None)
Quarter: 2012Q3

REPORT INFORMATION
  Report Type: 
  Country: None (occurrence: None)
  Receive Date: 20120827
  Receipt Date: 20120814
  Transmission Date: 20120928
  Serious: Yes (Hospitalization, Other)
  Sender: FDA-Public Use
  Company Number: JP-VERTEX PHARMACEUTICAL INC.-AE-2012-005206

PATIENT
  Age: 55 Year
  Sex: Female

DRUGS (15)
  1. URSO 250 [Concomitant]
     Route: 048
     Dates: start: 20120209
  2. LIVALO [Concomitant]
     Dosage: 2 MG, QD
     Route: 048
  3. TALION                             /01587402/ [Concomitant]
     Dosage: 20 MG, QD
     Route: 048
  4. LANSOPRAZOLE [Concomitant]
     Route: 048
     Dates: start: 20120205
  5. LENDORMIN [Concomitant]
     Route: 048
  6. PEGINTERFERON ALFA-2B [Concomitant]
     Indication: HEPATITIS C
     Dosage: 1.5 UNK, UNK
     Route: 058
     Dates: start: 20120202
  7. ALLEGRA [Concomitant]
     Dosage: 120 MG, QD
     Route: 048
     Dates: start: 20120315, end: 20120412
  8. VX-950 [Suspect]
     Indication: HEPATITIS C
     Dosage: 2250 MG, QD
     Route: 048
     Dates: start: 20120202, end: 20120315
  9. RIBAVIRIN [Concomitant]
     Dosage: 400 MG, UNK
     Route: 048
     Dates: start: 20120216, end: 20120423
  10. RIBAVIRIN [Concomitant]
     Dosage: 400 MG, QD
     Route: 048
  11. VX-950 [Suspect]
     Dosage: 1500 MG, QD
     Route: 048
     Dates: start: 20120315
  12. MAGMITT [Concomitant]
     Dosage: 1500 MG, QD
     Route: 048
  13. VX-950 [Suspect]
     Dosage: 1800 MG, QD
     Route: 048
     Dates: start: 20120315, end: 20120423
  14. RIBAVIRIN [Concomitant]
     Indication: HEPATITIS C
     Dosage: 600 MG, QD
     Route: 048
     Dates: start: 20120202, end: 20120216
  15. CMCP [Concomitant]
     Dosage: UNK, PRN
     Route: 048

REACTIONS (2)
  - PANCYTOPENIA [None]
  - DECREASED APPETITE [None]
